FAERS Safety Report 17059827 (Version 1)
Quarter: 2019Q4

REPORT INFORMATION
  Report Type: Spontaneous
  Country: US (occurrence: US)
  Receive Date: 20191121
  Receipt Date: 20191121
  Transmission Date: 20200122
  Serious: Yes (Hospitalization)
  Sender: FDA-Public Use
  Company Number: None

PATIENT
  Age: 8 Month
  Sex: Male

DRUGS (8)
  1. CLONAZEPAM 0.5MG [Concomitant]
     Active Substance: CLONAZEPAM
  2. EPIDIOLEX [Suspect]
     Active Substance: CANNABIDIOL
     Indication: EPILEPSY
     Dosage: ?          OTHER ROUTE:G-TUBE?
     Dates: start: 20190911
  3. VALPROCIC ACID 250MG/5ML [Concomitant]
  4. CARNITOR [Concomitant]
     Active Substance: LEVOCARNITINE
  5. KEPPRA [Concomitant]
     Active Substance: LEVETIRACETAM
  6. VIGABATRIN 500MG [Concomitant]
     Active Substance: VIGABATRIN
  7. LEVOTHYROXINE 0.025MG [Concomitant]
  8. FAMOTIDINE 40MG/5ML [Concomitant]
     Active Substance: FAMOTIDINE

REACTIONS (2)
  - Nephrolithiasis [None]
  - Epilepsy [None]

NARRATIVE: CASE EVENT DATE: 20191121
